FAERS Safety Report 10557150 (Version 1)
Quarter: 2014Q4

REPORT INFORMATION
  Report Type: Spontaneous
  Country: US (occurrence: None)
  Receive Date: 20141029
  Receipt Date: 20141029
  Transmission Date: 20150529
  Serious: Yes (Hospitalization, Other)
  Sender: FDA-Public Use
  Company Number: 2014NUEUSA00399

PATIENT
  Age: 61 Year
  Sex: Female

DRUGS (8)
  1. NUEDEXTA [Suspect]
     Active Substance: DEXTROMETHORPHAN HYDROBROMIDE\QUINIDINE SULFATE
     Indication: AFFECT LABILITY
     Dosage: 1 CAP
     Dates: start: 20140830, end: 2014
  2. RISPERDAL [Concomitant]
     Active Substance: RISPERIDONE
  3. TRAMADOL (TRAMADOL HYDROCHLORIDE) [Concomitant]
     Active Substance: TRAMADOL HYDROCHLORIDE
  4. TRILEPTAL [Concomitant]
     Active Substance: OXCARBAZEPINE
  5. COUMADIN [Concomitant]
     Active Substance: WARFARIN SODIUM
  6. ATORVASTATIN (ATORVASTATIN CALCIUM) [Concomitant]
  7. LAMICTAL [Concomitant]
     Active Substance: LAMOTRIGINE
  8. CELEXA [Concomitant]
     Active Substance: CITALOPRAM HYDROBROMIDE

REACTIONS (1)
  - Brain oedema [None]

NARRATIVE: CASE EVENT DATE: 2014
